FAERS Safety Report 6544262-3 (Version None)
Quarter: 2010Q1

REPORT INFORMATION
  Report Type: 
  Country: None (occurrence: None)
  Receive Date: 20100119
  Receipt Date: 20100119
  Transmission Date: 20100710
  Serious: Yes (Hospitalization)
  Sender: FDA-Public Use
  Company Number: None

PATIENT
  Age: 73 Year
  Sex: Female
  Weight: 63.5036 kg

DRUGS (5)
  1. TYLENOL (CAPLET) [Suspect]
     Indication: ARTHRALGIA
     Dosage: 1 TABLET 2X/DAY
     Dates: start: 20091211, end: 20100109
  2. TYLENOL (CAPLET) [Suspect]
     Indication: HEADACHE
     Dosage: 1 TABLET 2X/DAY
     Dates: start: 20091211, end: 20100109
  3. CARAFATE [Concomitant]
  4. FAMOTIDINE [Concomitant]
  5. DANSETRON [Concomitant]

REACTIONS (2)
  - BACK PAIN [None]
  - GASTRITIS [None]
